FAERS Safety Report 10057966 (Version 1)
Quarter: 2014Q2

REPORT INFORMATION
  Report Type: Spontaneous
  Country: US (occurrence: None)
  Receive Date: 20140403
  Receipt Date: 20140403
  Transmission Date: 20141212
  Serious: Yes (Other)
  Sender: FDA-Public Use
  Company Number: None

PATIENT
  Age: 67 Year
  Sex: Female
  Weight: 81.65 kg

DRUGS (3)
  1. MORPHINE SULFATE ER [Suspect]
     Indication: PAIN
     Dosage: 60MG, ONCE DAILY, TAKEN BY MOUTH
     Route: 048
     Dates: start: 20131031, end: 20140130
  2. CAYENNE CAPSULES [Concomitant]
  3. ASPIRIN [Concomitant]

REACTIONS (2)
  - Drug ineffective [None]
  - Product substitution issue [None]
